FAERS Safety Report 9229063 (Version 1)
Quarter: 2013Q2

REPORT INFORMATION
  Report Type: Spontaneous
  Country: SE (occurrence: SE)
  Receive Date: 20130412
  Receipt Date: 20130412
  Transmission Date: 20140414
  Serious: Yes (Hospitalization)
  Sender: FDA-Public Use
  Company Number: SE-ASTRAZENECA-2013SE22664

PATIENT
  Age: 87 Year
  Sex: Female

DRUGS (2)
  1. OMEPRAZOLE [Suspect]
     Route: 048
     Dates: start: 201210, end: 20121106
  2. CIPROFLOXACIN [Suspect]
     Route: 048
     Dates: start: 20121102, end: 20121106

REACTIONS (1)
  - Renal failure acute [Unknown]
